FAERS Safety Report 6978873-8 (Version None)
Quarter: 2010Q3

REPORT INFORMATION
  Report Type: 
  Country: None (occurrence: None)
  Receive Date: 20100913
  Receipt Date: 20100901
  Transmission Date: 20110219
  Serious: Yes (Other)
  Sender: FDA-Public Use
  Company Number: CA-WYE-H17363610

PATIENT
  Age: 80 Year
  Sex: Female

DRUGS (11)
  1. PANTOLOC [Suspect]
     Route: 048
  2. CALCIUM WITH VITAMIN D [Concomitant]
  3. EFFEXOR XR [Concomitant]
  4. FLORINEF [Concomitant]
  5. ZYPREXA [Concomitant]
  6. GRAVOL TAB [Concomitant]
  7. LIPITOR [Concomitant]
  8. PLAVIX [Concomitant]
  9. TYLENOL [Concomitant]
  10. AMATINE [Concomitant]
  11. GLUCOPHAGE [Concomitant]

REACTIONS (1)
  - HYPOMAGNESAEMIA [None]
